FAERS Safety Report 8858855 (Version 1)
Quarter: 2012Q4

REPORT INFORMATION
  Report Type: 
  Country: US (occurrence: US)
  Receive Date: 20121024
  Receipt Date: 20121024
  Transmission Date: 20130627
  Serious: Yes (Other)
  Sender: FDA-Public Use
  Company Number: US-BAYER-2012-110753

PATIENT
  Sex: Female

DRUGS (1)
  1. CIPRO [Suspect]
     Dosage: UNK
     Dates: start: 201206, end: 201206

REACTIONS (1)
  - Pertussis [None]
